FAERS Safety Report 7325758-3 (Version None)
Quarter: 2011Q1

REPORT INFORMATION
  Report Type: 
  Country: None (occurrence: None)
  Receive Date: 20110302
  Receipt Date: 20110221
  Transmission Date: 20110831
  Serious: Yes (Congenital Anomaly)
  Sender: FDA-Public Use
  Company Number: BR-ASTRAZENECA-2011SE09884

PATIENT
  Age: 28 Month
  Sex: Male

DRUGS (1)
  1. ZOLADEX [Suspect]
     Indication: ENDOMETRIOSIS
     Route: 064
     Dates: start: 20070101, end: 20070901

REACTIONS (1)
  - NEUROFIBROMATOSIS [None]
